FAERS Safety Report 7359072-7 (Version None)
Quarter: 2011Q1

REPORT INFORMATION
  Report Type: 
  Country: None (occurrence: None)
  Receive Date: 20110317
  Receipt Date: 20110309
  Transmission Date: 20110831
  Serious: Yes (Hospitalization)
  Sender: FDA-Public Use
  Company Number: DE-WATSON-2011-02389

PATIENT
  Age: 84 Year
  Sex: Female

DRUGS (9)
  1. BLOPRESID [Concomitant]
     Indication: HYPERTENSION
     Dosage: 1 DF, DAILY FOR SEVERAL YEARS
  2. RIVAROXABAN [Suspect]
     Indication: THROMBOSIS PROPHYLAXIS
     Dosage: 10 MG, DAILY
     Route: 048
     Dates: start: 20091203, end: 20100119
  3. BISOPROLOL FUMARATE [Concomitant]
     Indication: HYPERTENSION
     Dosage: 2.5 MG, BID
     Route: 048
  4. BERLOSIN [Concomitant]
     Indication: PAIN
     Dosage: 500 MG, TID
     Route: 048
     Dates: start: 20091204, end: 20091204
  5. CARMEN [Concomitant]
     Indication: HYPERTENSION
     Dosage: 5 MG, DAILY FOR SEVERAL YEARS
  6. CITALOPRAM HYDROBROMIDE [Suspect]
     Indication: PRODUCT USED FOR UNKNOWN INDICATION
     Dosage: 10 MG, BID
     Route: 048
     Dates: start: 20080101
  7. AERIUS                             /01398501/ [Concomitant]
     Indication: PRODUCT USED FOR UNKNOWN INDICATION
     Dosage: 5 MG, DAILY
  8. OXYGESIC [Concomitant]
     Indication: PAIN
     Dosage: 10 MG, BID
     Route: 048
     Dates: start: 20091204, end: 20091204
  9. BLOPRESS [Concomitant]
     Indication: HYPERTENSION
     Dosage: 16 MG, DAILY FOR SEVERAL YEARS

REACTIONS (2)
  - POST PROCEDURAL HAEMATOMA [None]
  - IMPAIRED HEALING [None]
